FAERS Safety Report 12338328 (Version 2)
Quarter: 2016Q2

REPORT INFORMATION
  Report Type: Spontaneous
  Country: US (occurrence: US)
  Receive Date: 20160505
  Receipt Date: 20160510
  Transmission Date: 20160815
  Serious: Yes (Other)
  Sender: FDA-Public Use
  Company Number: US-MDT-ADR-2016-00810

PATIENT
  Age: 53 Year
  Sex: Female

DRUGS (3)
  1. BACLOFEN. [Suspect]
     Active Substance: BACLOFEN
     Route: 037
  2. MORPHINE [Suspect]
     Active Substance: MORPHINE
     Route: 037
  3. UNKNOWN [Suspect]
     Active Substance: UNSPECIFIED INGREDIENT
     Route: 037

REACTIONS (3)
  - Disorientation [Unknown]
  - Overdose [Unknown]
  - Complication associated with device [Unknown]
